FAERS Safety Report 14901241 (Version 1)
Quarter: 2018Q2

REPORT INFORMATION
  Report Type: Spontaneous
  Country: US (occurrence: US)
  Receive Date: 20180516
  Receipt Date: 20180516
  Transmission Date: 20180711
  Serious: Yes (Hospitalization)
  Sender: FDA-Public Use
  Company Number: US-IPSEN BIOPHARMACEUTICALS, INC.-2018-07000

PATIENT
  Sex: Female

DRUGS (4)
  1. XERMELO [Concomitant]
     Active Substance: TELOTRISTAT ETHYL
     Route: 048
     Dates: start: 201711
  2. XERMELO [Concomitant]
     Active Substance: TELOTRISTAT ETHYL
     Indication: CARCINOID TUMOUR
     Route: 048
     Dates: start: 20171017, end: 201711
  3. DOXYCYCLINE. [Concomitant]
     Active Substance: DOXYCYCLINE
  4. LANREOTIDE AUTOGEL [Suspect]
     Active Substance: LANREOTIDE
     Indication: PRODUCT USED FOR UNKNOWN INDICATION
     Dosage: NOT REPORTED
     Route: 065

REACTIONS (1)
  - Carcinoid syndrome [Unknown]
